FAERS Safety Report 5230775-3 (Version None)
Quarter: 2007Q1

REPORT INFORMATION
  Report Type: 
  Country: None (occurrence: None)
  Receive Date: 20070202
  Receipt Date: 20070118
  Transmission Date: 20070707
  Serious: Yes (Congenital Anomaly)
  Sender: FDA-Public Use
  Company Number: GXKR2007MY00937

PATIENT

DRUGS (2)
  1. SERTRALINE (NGX) (SERTRALINE) UNKNOWN [Suspect]
     Dosage: QD, TRANSPLACENTAL
     Route: 064
  2. LORAZEPAM [Suspect]
     Dosage: TRANSPLACENTAL
     Route: 064

REACTIONS (2)
  - CLEFT LIP AND PALATE [None]
  - DRUG EXPOSURE DURING PREGNANCY [None]
